FAERS Safety Report 7703940-0 (Version None)
Quarter: 2011Q3

REPORT INFORMATION
  Report Type: 
  Country: None (occurrence: None)
  Receive Date: 20110823
  Receipt Date: 20110816
  Transmission Date: 20111222
  Serious: Yes (Other)
  Sender: FDA-Public Use
  Company Number: JP-ROCHE-797480

PATIENT

DRUGS (2)
  1. XELODA [Suspect]
     Route: 048
     Dates: start: 20110729, end: 20110808
  2. AVASTIN [Suspect]
     Route: 041
     Dates: start: 20110729

REACTIONS (2)
  - DIARRHOEA [None]
  - MUCOUS MEMBRANE DISORDER [None]
